FAERS Safety Report 4372364-9 (Version None)
Quarter: 2004Q2

REPORT INFORMATION
  Report Type: 
  Country: None (occurrence: None)
  Receive Date: 20040526
  Receipt Date: 20040513
  Transmission Date: 20050107
  Serious: Yes (Death, Life-Threatening, Hospitalization)
  Sender: FDA-Public Use
  Company Number: 2004EU000988

PATIENT
  Age: 22 Year
  Sex: Male

DRUGS (21)
  1. PROGRAF [Suspect]
     Indication: RENAL TRANSPLANT
     Dosage: SEE IMAGE
  2. BACTRIM [Suspect]
     Dosage: UNKNOWN/D
  3. CELLCEPT [Concomitant]
  4. CORTICOSTEROIDS [Concomitant]
  5. CYMEVAN (GANCICLOVIR SODIUM) [Concomitant]
  6. GENTAMICIN [Concomitant]
  7. VANCOMYCIN [Concomitant]
  8. CEFTAZIDIME PENTAHYDRATE [Concomitant]
  9. CIPROFLOXACIN [Concomitant]
  10. SUFENTA [Concomitant]
  11. MIDAZOLAM HCL [Concomitant]
  12. SOLU-MEDROL [Concomitant]
  13. FOSCARNET [Concomitant]
  14. VENOGLOBULIN [Concomitant]
  15. NORADRENALINE (NOREPINEPHRINE) [Concomitant]
  16. NIMBEX [Concomitant]
  17. OMEPRAZOLE [Concomitant]
  18. ERYTHROMYCIN [Concomitant]
  19. AMPHOTERICIN B [Concomitant]
  20. OFLOXACIN [Concomitant]
  21. HYDROCORTISONE [Concomitant]

REACTIONS (16)
  - ABDOMINAL PAIN [None]
  - CARDIAC TAMPONADE [None]
  - COMPLICATIONS OF TRANSPLANTED KIDNEY [None]
  - DISSEMINATED CYTOMEGALOVIRAL INFECTION [None]
  - GENERAL PHYSICAL HEALTH DETERIORATION [None]
  - KIDNEY TRANSPLANT REJECTION [None]
  - LYMPHOPENIA [None]
  - METAPLASIA [None]
  - PNEUMOTHORAX [None]
  - PULMONARY INTERSTITIAL EMPHYSEMA SYNDROME [None]
  - PYREXIA [None]
  - RENAL IMPAIRMENT [None]
  - RENAL NECROSIS [None]
  - RESPIRATORY DISTRESS [None]
  - SWEAT GLAND DISORDER [None]
  - TOXIC EPIDERMAL NECROLYSIS [None]
